FAERS Safety Report 5357575-8 (Version None)
Quarter: 2007Q2

REPORT INFORMATION
  Report Type: 
  Country: None (occurrence: None)
  Receive Date: 20070614
  Receipt Date: 20070607
  Transmission Date: 20071010
  Serious: Yes (Hospitalization)
  Sender: FDA-Public Use
  Company Number: US-ELI_LILLY_AND_COMPANY-US200703003241

PATIENT
  Age: 10 Year
  Sex: Male

DRUGS (2)
  1. HUMATROPE [Suspect]
     Indication: GROWTH RETARDATION
     Dosage: UNK, UNKNOWN
     Dates: start: 20060901, end: 20070101
  2. HUMATROPE [Suspect]
     Dosage: UNK, UNKNOWN
     Dates: start: 20070312

REACTIONS (3)
  - ABDOMINAL DISTENSION [None]
  - AUTONOMIC NERVOUS SYSTEM IMBALANCE [None]
  - VOMITING [None]
